FAERS Safety Report 9462243 (Version 2)
Quarter: 2013Q3

REPORT INFORMATION
  Report Type: Report from Study
  Country: GB (occurrence: GB)
  Receive Date: 20130816
  Receipt Date: 20130930
  Transmission Date: 20140515
  Serious: Yes (Other)
  Sender: FDA-Public Use
  Company Number: GB-VIIV HEALTHCARE LIMITED-A1032673B

PATIENT
  Age: 0 Day
  Sex: Female
  Weight: .5 kg

DRUGS (4)
  1. EPZICOM [Suspect]
     Indication: ANTIRETROVIRAL THERAPY
     Dosage: 1TAB PER DAY
     Route: 064
  2. VIREAD [Suspect]
     Indication: ANTIRETROVIRAL THERAPY
     Dosage: 245MG PER DAY
     Route: 064
  3. REYATAZ [Suspect]
     Indication: ANTIRETROVIRAL THERAPY
     Dosage: 300MG PER DAY
     Route: 064
  4. NORVIR [Suspect]
     Indication: ANTIRETROVIRAL THERAPY
     Dosage: 100MG PER DAY
     Route: 064

REACTIONS (4)
  - Cerebral haemorrhage [Unknown]
  - Low birth weight baby [Unknown]
  - Premature baby [Unknown]
  - Foetal exposure during pregnancy [Unknown]
